FAERS Safety Report 17815181 (Version 1)
Quarter: 2020Q2

REPORT INFORMATION
  Report Type: Spontaneous
  Country: CN (occurrence: CN)
  Receive Date: 20200522
  Receipt Date: 20200522
  Transmission Date: 20200714
  Serious: Yes (Other)
  Sender: FDA-Public Use
  Company Number: CN-ROCHE-2604359

PATIENT
  Age: 53 Year
  Sex: Male

DRUGS (37)
  1. MABTHERA [Suspect]
     Active Substance: RITUXIMAB
     Indication: DIFFUSE LARGE B-CELL LYMPHOMA REFRACTORY
     Dosage: RR-DA-EPOCH, D0
     Route: 065
     Dates: start: 20180411
  2. ETOPOSIDE. [Concomitant]
     Active Substance: ETOPOSIDE
     Dosage: ICE REGIMEN, D1-3
     Route: 065
     Dates: start: 20180616
  3. METHYLPREDNISOLONE. [Concomitant]
     Active Substance: METHYLPREDNISOLONE
     Indication: DIFFUSE LARGE B-CELL LYMPHOMA REFRACTORY
     Dosage: RR-DA-EPOCH, D1-5
     Route: 065
     Dates: start: 20180411
  4. METHYLPREDNISOLONE. [Concomitant]
     Active Substance: METHYLPREDNISOLONE
     Dosage: RR-DA-EPOCH, D1-5
     Route: 065
     Dates: start: 20180430
  5. IBRUTINIB [Concomitant]
     Active Substance: IBRUTINIB
     Indication: DIFFUSE LARGE B-CELL LYMPHOMA REFRACTORY
     Dosage: IBRUTINIB+LENALIDOMIDE
     Route: 048
     Dates: start: 20180520
  6. IFOSFAMIDE. [Concomitant]
     Active Substance: IFOSFAMIDE
     Route: 065
     Dates: start: 20190116
  7. MESNA. [Concomitant]
     Active Substance: MESNA
     Route: 065
     Dates: start: 20190116
  8. MABTHERA [Suspect]
     Active Substance: RITUXIMAB
     Dosage: RR-DA-EPOCH, D0
     Route: 065
     Dates: start: 20180430
  9. EPIRUBICIN HYDROCHLORIDE. [Concomitant]
     Active Substance: EPIRUBICIN HYDROCHLORIDE
     Indication: DIFFUSE LARGE B-CELL LYMPHOMA REFRACTORY
     Dosage: RR-DA-EPOCH, D1-4
     Route: 065
     Dates: start: 20180411
  10. OXALIPLATIN. [Concomitant]
     Active Substance: OXALIPLATIN
     Dosage: DAY 4
     Route: 065
     Dates: start: 20180616
  11. OXALIPLATIN. [Concomitant]
     Active Substance: OXALIPLATIN
     Dosage: 100MG D2, 50MG D3
     Route: 065
     Dates: start: 20181207
  12. MESNA. [Concomitant]
     Active Substance: MESNA
     Route: 065
     Dates: start: 20180616
  13. ETOPOSIDE. [Concomitant]
     Active Substance: ETOPOSIDE
     Dosage: RR-DA-EPOCH, D1-4
     Route: 065
     Dates: start: 20180430
  14. CYCLOPHOSPHAMIDE. [Concomitant]
     Active Substance: CYCLOPHOSPHAMIDE
     Indication: DIFFUSE LARGE B-CELL LYMPHOMA REFRACTORY
     Dosage: RR-DA-EPOCH, D5
     Route: 065
     Dates: start: 20180411
  15. CYCLOPHOSPHAMIDE. [Concomitant]
     Active Substance: CYCLOPHOSPHAMIDE
     Dosage: RR-DA-EPOCH, D5
     Route: 065
     Dates: start: 20180430
  16. EPIRUBICIN HYDROCHLORIDE. [Concomitant]
     Active Substance: EPIRUBICIN HYDROCHLORIDE
     Dosage: RR-DA-EPOCH, D1-4
     Route: 065
     Dates: start: 20180430
  17. LENALIDOMIDE [Concomitant]
     Active Substance: LENALIDOMIDE
     Indication: DIFFUSE LARGE B-CELL LYMPHOMA REFRACTORY
     Dosage: RR-DA-EPOCH, D1-14
     Route: 065
     Dates: start: 20180411
  18. OXALIPLATIN. [Concomitant]
     Active Substance: OXALIPLATIN
     Indication: DIFFUSE LARGE B-CELL LYMPHOMA REFRACTORY
     Dosage: GEMCITABINE + OXALIPLATIN, D1
     Route: 065
     Dates: start: 20180529
  19. ETOPOSIDE. [Concomitant]
     Active Substance: ETOPOSIDE
     Indication: DIFFUSE LARGE B-CELL LYMPHOMA REFRACTORY
     Dosage: RR-DA-EPOCH, D1-4
     Route: 065
     Dates: start: 20180411
  20. ETOPOSIDE. [Concomitant]
     Active Substance: ETOPOSIDE
     Dosage: PRESCRIBED ICE + BCL-2 CHEMOTHERAPY, D1-3
     Route: 065
     Dates: start: 20181207
  21. ETOPOSIDE. [Concomitant]
     Active Substance: ETOPOSIDE
     Route: 065
     Dates: start: 20190116
  22. VINDESINE [Concomitant]
     Active Substance: VINDESINE
     Indication: DIFFUSE LARGE B-CELL LYMPHOMA REFRACTORY
     Dosage: RR-DA-EPOCH, D1-4
     Route: 065
     Dates: start: 20180411
  23. IFOSFAMIDE. [Concomitant]
     Active Substance: IFOSFAMIDE
     Dosage: DAY 2.3
     Route: 065
     Dates: start: 20181207
  24. FLUDARABINE [Concomitant]
     Active Substance: FLUDARABINE PHOSPHATE
     Dosage: FLUDARABINE+CYCLOPHOSPHAMIDE, -4~-2 D
     Route: 065
     Dates: start: 20180706
  25. SPIRONOLACTONE. [Concomitant]
     Active Substance: SPIRONOLACTONE
     Indication: POLYURIA
     Route: 065
     Dates: start: 20180401
  26. OXALIPLATIN. [Concomitant]
     Active Substance: OXALIPLATIN
     Dosage: ICE REGIMEN, D4
     Route: 065
     Dates: start: 20180616
  27. OXALIPLATIN. [Concomitant]
     Active Substance: OXALIPLATIN
     Route: 065
     Dates: start: 20190116
  28. IFOSFAMIDE. [Concomitant]
     Active Substance: IFOSFAMIDE
     Indication: DIFFUSE LARGE B-CELL LYMPHOMA REFRACTORY
     Dosage: ICE REGIMEN, D1-3
     Route: 065
     Dates: start: 20180616
  29. FUROSEMIDE. [Concomitant]
     Active Substance: FUROSEMIDE
     Indication: POLYURIA
     Route: 065
     Dates: start: 20180401
  30. VINDESINE [Concomitant]
     Active Substance: VINDESINE
     Dosage: RR-DA-EPOCH, D1-4
     Route: 065
     Dates: start: 20180430
  31. LENALIDOMIDE [Concomitant]
     Active Substance: LENALIDOMIDE
     Dosage: RR-DA-EPOCH, D1-14
     Route: 065
     Dates: start: 20180430
  32. GEMCITABINE. [Concomitant]
     Active Substance: GEMCITABINE
     Indication: DIFFUSE LARGE B-CELL LYMPHOMA REFRACTORY
     Dosage: GEMCITABINE + OXALIPLATIN, D1 D8
     Route: 042
     Dates: start: 20180529
  33. MABTHERA [Suspect]
     Active Substance: RITUXIMAB
     Dosage: BCL-2+RICE
     Route: 065
     Dates: start: 20190116
  34. CYCLOPHOSPHAMIDE. [Concomitant]
     Active Substance: CYCLOPHOSPHAMIDE
     Dosage: FLUDARABINE+CYCLOPHOSPHAMIDE, -4 D
     Route: 065
     Dates: start: 20180706
  35. LENALIDOMIDE [Concomitant]
     Active Substance: LENALIDOMIDE
     Dosage: IBRUTINIB+LENALIDOMIDE
     Route: 048
     Dates: start: 20180520
  36. MESNA. [Concomitant]
     Active Substance: MESNA
     Dosage: ICE + BCL-2 CHEMOTHERAPY, DIVIDED INTO 3 DOSES ON D2, 3
     Route: 065
     Dates: start: 20181207
  37. IFOSFAMIDE. [Concomitant]
     Active Substance: IFOSFAMIDE
     Dosage: DAY 1-3
     Route: 065
     Dates: start: 20180616

REACTIONS (5)
  - Pyrexia [Recovering/Resolving]
  - Infection [Unknown]
  - Haemophagocytic lymphohistiocytosis [Unknown]
  - Chest discomfort [Unknown]
  - Agranulocytosis [Unknown]

NARRATIVE: CASE EVENT DATE: 20180514
